FAERS Safety Report 7618023-8 (Version None)
Quarter: 2011Q3

REPORT INFORMATION
  Report Type: 
  Country: None (occurrence: None)
  Receive Date: 20110718
  Receipt Date: 20110714
  Transmission Date: 20111222
  Serious: Yes (Death)
  Sender: FDA-Public Use
  Company Number: PHHY2011US63447

PATIENT
  Age: 56 Year
  Sex: Male

DRUGS (1)
  1. NEORAL [Suspect]
     Dosage: 250 MG, BID
     Route: 048
     Dates: end: 20110201

REACTIONS (1)
  - LEUKAEMIA RECURRENT [None]
